FAERS Safety Report 4757806-9 (Version None)
Quarter: 2005Q3

REPORT INFORMATION
  Report Type: 
  Country: None (occurrence: None)
  Receive Date: 20050831
  Receipt Date: 20050316
  Transmission Date: 20060218
  Serious: Yes (Other)
  Sender: FDA-Public Use
  Company Number: 200510876JP

PATIENT
  Age: 75 Year
  Sex: Male

DRUGS (9)
  1. KETEK [Suspect]
     Indication: CHRONIC SINUSITIS
     Route: 048
     Dates: start: 20050131, end: 20050315
  2. NITRAZEPAM [Suspect]
     Indication: LARYNGOPHARYNGITIS
  3. PROHEPARUM [Concomitant]
  4. BAYLOTENSIN [Concomitant]
  5. FLIVAS [Concomitant]
     Indication: DYSURIA
  6. MUCOSAL [Concomitant]
  7. HOKUNALIN [Concomitant]
     Indication: BRONCHITIS
     Dates: start: 20050311, end: 20050323
  8. C-CYSTEN [Concomitant]
     Indication: CHRONIC SINUSITIS
     Dates: start: 20050131, end: 20050330
  9. TOCLASE [Concomitant]
     Indication: BRONCHITIS
     Route: 048
     Dates: start: 20050311, end: 20050323

REACTIONS (4)
  - FALL [None]
  - INJURY [None]
  - LACERATION [None]
  - LOSS OF CONSCIOUSNESS [None]
